FAERS Safety Report 6683224-2 (Version None)
Quarter: 2010Q2

REPORT INFORMATION
  Report Type: 
  Country: None (occurrence: None)
  Receive Date: 20100415
  Receipt Date: 20100218
  Transmission Date: 20101027
  Serious: No
  Sender: FDA-Public Use
  Company Number: US-ALLERGAN-0913350US

PATIENT
  Age: 48 Year
  Sex: Female

DRUGS (2)
  1. LATISSE [Suspect]
     Indication: GROWTH OF EYELASHES
     Dosage: 1 GTT, QHS
     Route: 061
     Dates: end: 20091201
  2. ALLERGY EYE DROPS [Concomitant]
     Indication: ALLERGY TO ANIMAL

REACTIONS (2)
  - MADAROSIS [None]
  - TRICHORRHEXIS [None]
